FAERS Safety Report 19935079 (Version 1)
Quarter: 2021Q4

REPORT INFORMATION
  Report Type: Spontaneous
  Country: US (occurrence: US)
  Receive Date: 20211009
  Receipt Date: 20211009
  Transmission Date: 20220303
  Serious: No
  Sender: FDA-Public Use
  Company Number: US-JNJFOC-20210949364

PATIENT
  Age: 78 Year
  Sex: Female

DRUGS (2)
  1. STELARA [Suspect]
     Active Substance: USTEKINUMAB
     Indication: Product used for unknown indication
     Dosage: 45MG/0.5ML
     Route: 058
     Dates: start: 201908
  2. STELARA [Suspect]
     Active Substance: USTEKINUMAB
     Route: 058
     Dates: start: 20210821

REACTIONS (2)
  - Head discomfort [Unknown]
  - Headache [Unknown]

NARRATIVE: CASE EVENT DATE: 20210821
